FAERS Safety Report 7497011-9 (Version None)
Quarter: 2011Q2

REPORT INFORMATION
  Report Type: 
  Country: None (occurrence: None)
  Receive Date: 20110523
  Receipt Date: 20110516
  Transmission Date: 20111010
  Serious: Yes (Hospitalization)
  Sender: FDA-Public Use
  Company Number: US-TEVA-282046USA

PATIENT
  Age: 66 Year
  Sex: Female

DRUGS (4)
  1. CETUXIMAB [Suspect]
     Indication: ANAL CANCER
     Dates: start: 20110228
  2. CISPLATIN [Suspect]
     Indication: ANAL CANCER
     Dates: start: 20110228
  3. SODIUM CHLORIDE [Concomitant]
  4. FLUOROURACIL [Suspect]
     Indication: ANAL CANCER
     Dates: start: 20110228

REACTIONS (2)
  - PYREXIA [None]
  - UROSEPSIS [None]
